FAERS Safety Report 4708619-5 (Version None)
Quarter: 2005Q3

REPORT INFORMATION
  Report Type: 
  Country: None (occurrence: None)
  Receive Date: 20050707
  Receipt Date: 20050704
  Transmission Date: 20060218
  Serious: Yes (Death, Hospitalization)
  Sender: FDA-Public Use
  Company Number: 200512235FR

PATIENT
  Age: 57 Year
  Sex: Male
  Weight: 120 kg

DRUGS (9)
  1. FLAGYL [Suspect]
     Indication: SKIN ULCER
     Dates: start: 20050320, end: 20050323
  2. AUGMENTIN '125' [Suspect]
     Indication: SKIN ULCER
     Dates: start: 20050320, end: 20050323
  3. CARDENSIEL [Suspect]
     Route: 048
  4. ISOSORBIDE MONONITRATE [Concomitant]
     Route: 048
  5. ZESTRIL [Concomitant]
  6. PLAVIX [Concomitant]
  7. PREVISCAN [Concomitant]
  8. LASIX [Concomitant]
  9. CORDARONE [Concomitant]

REACTIONS (4)
  - LEG AMPUTATION [None]
  - LEUKOCYTOCLASTIC VASCULITIS [None]
  - PURPURA [None]
  - SEPTIC SHOCK [None]
